FAERS Safety Report 19636527 (Version 1)
Quarter: 2021Q3

REPORT INFORMATION
  Report Type: Spontaneous
  Country: US (occurrence: US)
  Receive Date: 20210730
  Receipt Date: 20210730
  Transmission Date: 20211014
  Serious: No
  Sender: FDA-Public Use
  Company Number: None

PATIENT
  Age: 62 Year
  Sex: Female
  Weight: 58.5 kg

DRUGS (11)
  1. NASACORT NS [Concomitant]
  2. LYRICA [Concomitant]
     Active Substance: PREGABALIN
  3. ESTRADIOL VAGINAL TAB [Concomitant]
  4. PEPCID [Concomitant]
     Active Substance: FAMOTIDINE
  5. CALCIUM 600 MG [Concomitant]
  6. PROBIOTIC [Concomitant]
     Active Substance: PROBIOTICS NOS
  7. RESTASIS [Concomitant]
     Active Substance: CYCLOSPORINE
  8. FENTANYL TRANSDERMAL SYSTEM [Suspect]
     Active Substance: FENTANYL
     Indication: NEUROPATHY PERIPHERAL
     Dosage: ?          QUANTITY:1 PATCH(ES);OTHER FREQUENCY:EVERY 3 DAYS;?
     Route: 062
     Dates: start: 20210204, end: 20210304
  9. OXYCODONE [Concomitant]
     Active Substance: OXYCODONE
  10. ASTELIN [Concomitant]
     Active Substance: AZELASTINE HYDROCHLORIDE
  11. SYSTANE GEL [Concomitant]

REACTIONS (6)
  - Product substitution issue [None]
  - Chills [None]
  - Hyperhidrosis [None]
  - Product adhesion issue [None]
  - Therapeutic product effect incomplete [None]
  - Device delivery system issue [None]

NARRATIVE: CASE EVENT DATE: 20210207
